FAERS Safety Report 9045384 (Version 1)
Quarter: 2013Q1

REPORT INFORMATION
  Report Type: Report from Study
  Country: US (occurrence: US)
  Receive Date: 20130131
  Receipt Date: 20130131
  Transmission Date: 20140127
  Serious: No
  Sender: FDA-Public Use
  Company Number: US-ABBOTT-12P-163-1002246-00

PATIENT
  Age: 28 Year
  Sex: Male

DRUGS (2)
  1. HUMIRA [Suspect]
     Indication: CROHN^S DISEASE
     Dosage: 1 PEN, EVERY OTHER WEEK
     Dates: start: 201202
  2. HUMIRA [Suspect]
     Dosage: 1 PEN, EVERY OTHER WEEK
     Dates: start: 201205

REACTIONS (2)
  - Photophobia [Recovered/Resolved]
  - Eye inflammation [Recovered/Resolved]
